FAERS Safety Report 4773985-1 (Version None)
Quarter: 2005Q3

REPORT INFORMATION
  Report Type: 
  Country: None (occurrence: None)
  Receive Date: 20050919
  Receipt Date: 20050908
  Transmission Date: 20060218
  Serious: No
  Sender: FDA-Public Use
  Company Number: US-2005-018616

PATIENT
  Age: 48 Year
  Sex: Female
  Weight: 49.9 kg

DRUGS (3)
  1. BETASERON [Suspect]
     Indication: SECONDARY PROGRESSIVE MULTIPLE SCLEROSIS
     Dates: start: 19950101
  2. PROVIGIL [Concomitant]
  3. DETROL [Concomitant]

REACTIONS (6)
  - ANKLE FRACTURE [None]
  - ASTHENIA [None]
  - FALL [None]
  - HEMIPARESIS [None]
  - MENISCUS LESION [None]
  - MULTIPLE SCLEROSIS RELAPSE [None]
